FAERS Safety Report 6898023-6 (Version None)
Quarter: 2010Q3

REPORT INFORMATION
  Report Type: 
  Country: None (occurrence: None)
  Receive Date: 20100802
  Receipt Date: 20070818
  Transmission Date: 20110219
  Serious: No
  Sender: FDA-Public Use
  Company Number: US-PFIZER INC-2007069470

PATIENT
  Sex: Male
  Weight: 86.2 kg

DRUGS (3)
  1. LYRICA [Suspect]
     Indication: CONVULSION
     Dates: start: 20070101
  2. METFORMIN HCL [Concomitant]
     Indication: DIABETES MELLITUS
  3. NEURONTIN [Concomitant]
     Indication: CONVULSION

REACTIONS (5)
  - BLOOD GLUCOSE INCREASED [None]
  - HEADACHE [None]
  - VISION BLURRED [None]
  - VISUAL IMPAIRMENT [None]
  - WEIGHT INCREASED [None]
